FAERS Safety Report 22260258 (Version 1)
Quarter: 2023Q2

REPORT INFORMATION
  Report Type: Spontaneous
  Country: US (occurrence: US)
  Receive Date: 20230427
  Receipt Date: 20230427
  Transmission Date: 20230721
  Serious: No
  Sender: FDA-Public Use
  Company Number: US-MYOVANT SCIENCES GMBH-2023MYSCI0300228

PATIENT
  Age: 67 Year
  Sex: Male

DRUGS (7)
  1. ORGOVYX [Suspect]
     Active Substance: RELUGOLIX
     Indication: Prostate cancer
     Dosage: 360 MILLIGRAM, ONE TIME DOSE
     Route: 048
     Dates: start: 20220901, end: 20220901
  2. ORGOVYX [Suspect]
     Active Substance: RELUGOLIX
     Dosage: 120 MILLIGRAM, QD
     Route: 048
     Dates: start: 20220902, end: 20230307
  3. METROZOL                           /00012501/ [Concomitant]
     Indication: Gastritis
     Dosage: 20 MILLIGRAM, BID
     Route: 065
     Dates: start: 2022
  4. VITAMIN B [Concomitant]
     Active Substance: VITAMIN B
     Indication: Product used for unknown indication
     Dosage: 1 UNIT, QD
     Route: 065
     Dates: start: 2014
  5. B12                                /00056201/ [Concomitant]
     Indication: Product used for unknown indication
     Dosage: 1 UNIT, QD
     Route: 065
     Dates: start: 2014
  6. HOMOCYSTEINE FORMULA [Concomitant]
     Indication: Product used for unknown indication
     Dosage: 1 UNIT, QD
     Route: 065
     Dates: start: 2019
  7. OMEPRAZOLE [Concomitant]
     Active Substance: OMEPRAZOLE
     Indication: Gastritis
     Dosage: 20 MILLIGRAM, BID
     Route: 065

REACTIONS (2)
  - Hot flush [Unknown]
  - Therapy interrupted [Unknown]

NARRATIVE: CASE EVENT DATE: 20230307
